FAERS Safety Report 7116098-6 (Version None)
Quarter: 2010Q4

REPORT INFORMATION
  Report Type: 
  Country: None (occurrence: None)
  Receive Date: 20101122
  Receipt Date: 20101111
  Transmission Date: 20110411
  Serious: Yes (Other)
  Sender: FDA-Public Use
  Company Number: US-ROCHE-741630

PATIENT
  Sex: Male

DRUGS (1)
  1. ACTEMRA [Suspect]
     Dosage: FORM: INFUSION
     Route: 042

REACTIONS (3)
  - FLUSHING [None]
  - HYPOTENSION [None]
  - TACHYCARDIA [None]
